FAERS Safety Report 12111740 (Version 2)
Quarter: 2016Q2

REPORT INFORMATION
  Report Type: Spontaneous
  Country: IE (occurrence: IE)
  Receive Date: 20160224
  Receipt Date: 20160408
  Transmission Date: 20160815
  Serious: Yes (Other)
  Sender: FDA-Public Use
  Company Number: IE-TAKEDA-2016TJP003793

PATIENT
  Age: 5 Year
  Sex: Female

DRUGS (1)
  1. LANSOPRAZOLE. [Suspect]
     Active Substance: LANSOPRAZOLE
     Indication: REGURGITATION
     Dosage: 15 MG, QD
     Route: 048
     Dates: start: 20151001, end: 20160206

REACTIONS (1)
  - Chromatopsia [Recovered/Resolved]

NARRATIVE: CASE EVENT DATE: 2015
